FAERS Safety Report 4690930-8 (Version None)
Quarter: 2005Q2

REPORT INFORMATION
  Report Type: 
  Country: None (occurrence: None)
  Receive Date: 20050614
  Receipt Date: 20050614
  Transmission Date: 20051028
  Serious: Yes (Hospitalization)
  Sender: FDA-Public Use
  Company Number: None

PATIENT
  Sex: Male

DRUGS (16)
  1. VIAGRA [Suspect]
     Indication: ERECTILE DYSFUNCTION
     Dosage: ONE TAB DAILY AS NEEDED, LAST 2 DOSES
     Dates: start: 20050501
  2. VIAGRA [Suspect]
     Indication: PROSTATE CANCER
     Dosage: ONE TAB DAILY AS NEEDED, LAST 2 DOSES
     Dates: start: 20050501
  3. VIAGRA [Suspect]
     Indication: ERECTILE DYSFUNCTION
     Dosage: ONE TAB DAILY AS NEEDED, LAST 2 DOSES
     Dates: start: 20050521
  4. VIAGRA [Suspect]
     Indication: PROSTATE CANCER
     Dosage: ONE TAB DAILY AS NEEDED, LAST 2 DOSES
     Dates: start: 20050521
  5. TOPROL-XL [Concomitant]
  6. DIGOXIN [Concomitant]
  7. ALTACE [Concomitant]
  8. NORVASC [Concomitant]
  9. BENICAR HCT [Concomitant]
  10. AVANDIA [Concomitant]
  11. PERCOCET [Concomitant]
  12. AMBIEN [Concomitant]
  13. GLYCOTROL XL [Concomitant]
  14. VYTORIN [Concomitant]
  15. NIACON [Concomitant]
  16. IRON [Concomitant]

REACTIONS (1)
  - CORONARY ARTERY OCCLUSION [None]
